FAERS Safety Report 7295057-7 (Version None)
Quarter: 2011Q1

REPORT INFORMATION
  Report Type: 
  Country: None (occurrence: None)
  Receive Date: 20110203
  Receipt Date: 20110120
  Transmission Date: 20110831
  Serious: Yes (Other)
  Sender: FDA-Public Use
  Company Number: 025014

PATIENT
  Sex: Male
  Weight: 99.8 kg

DRUGS (6)
  1. DOXYCYCLINE [Concomitant]
  2. ZEGERID [Concomitant]
  3. METHOTREXATE [Concomitant]
  4. PREDNISONE [Concomitant]
  5. CIMZIA [Suspect]
     Dosage: (400 MG 1X/MONTH SUBCUTANEOUS)
     Route: 058
     Dates: start: 20090901
  6. PLAVIX [Concomitant]

REACTIONS (4)
  - DIZZINESS EXERTIONAL [None]
  - COLECTOMY TOTAL [None]
  - DYSPNOEA [None]
  - PULMONARY SARCOIDOSIS [None]
